FAERS Safety Report 5332023-2 (Version None)
Quarter: 2007Q2

REPORT INFORMATION
  Report Type: 
  Country: None (occurrence: None)
  Receive Date: 20070523
  Receipt Date: 20070517
  Transmission Date: 20071010
  Serious: Yes (Other)
  Sender: FDA-Public Use
  Company Number: PHEH2007US04215

PATIENT
  Age: 59 Year
  Sex: Female
  Weight: 67.573 kg

DRUGS (19)
  1. ZELNORM [Suspect]
     Indication: IRRITABLE BOWEL SYNDROME
     Dosage: 6 MG, BID
     Route: 048
     Dates: start: 20050101, end: 20070403
  2. NEXIUM [Concomitant]
  3. SINGULAIR [Concomitant]
  4. LIPITOR [Concomitant]
  5. MIDODRINE [Concomitant]
  6. ACEBUTOLOL [Concomitant]
  7. KLOR-CON [Concomitant]
  8. AMITIZA [Concomitant]
  9. FENTANYL [Concomitant]
  10. ALBUTEROL [Concomitant]
  11. TRAMADOL HCL [Concomitant]
  12. ZOFRAN [Concomitant]
  13. OXYCODONE HCL [Concomitant]
  14. LOTRIMIN [Concomitant]
     Route: 061
  15. SPIRONOLACTONE [Concomitant]
  16. PYRIDIUM [Concomitant]
  17. CALCIUM CHLORIDE [Concomitant]
  18. COLACE [Concomitant]
  19. ADVAIR DISKUS 100/50 [Concomitant]

REACTIONS (34)
  - ABDOMINAL DISTENSION [None]
  - ABDOMINAL PAIN [None]
  - ALOPECIA [None]
  - AMNESIA [None]
  - BIOPSY LIVER ABNORMAL [None]
  - BLOOD CHROMOGRANIN A INCREASED [None]
  - CARCINOID TUMOUR [None]
  - CATARACT [None]
  - CHOLECYSTECTOMY [None]
  - CONDITION AGGRAVATED [None]
  - CYSTITIS [None]
  - DISTURBANCE IN ATTENTION [None]
  - DIZZINESS [None]
  - DYSPNOEA [None]
  - FATIGUE [None]
  - GAIT DISTURBANCE [None]
  - GALLBLADDER CANCER [None]
  - HEPATIC ADENOMA [None]
  - HOT FLUSH [None]
  - LIVER OPERATION [None]
  - MUSCLE RIGIDITY [None]
  - MUSCLE SPASMS [None]
  - NAUSEA [None]
  - NEOPLASM SKIN [None]
  - NEPHROLITHIASIS [None]
  - PAIN [None]
  - PARAESTHESIA [None]
  - PRURITUS GENERALISED [None]
  - RESTLESSNESS [None]
  - SWELLING [None]
  - SYNCOPE [None]
  - TREMOR [None]
  - VISUAL DISTURBANCE [None]
  - WEIGHT FLUCTUATION [None]
